FAERS Safety Report 25681033 (Version 1)
Quarter: 2025Q3

REPORT INFORMATION
  Report Type: Spontaneous
  Country: US (occurrence: None)
  Receive Date: 20250814
  Receipt Date: 20250814
  Transmission Date: 20251020
  Serious: Yes (Hospitalization)
  Sender: FDA-CTU
  Company Number: None

PATIENT
  Age: 71 Year
  Sex: Female
  Weight: 59.1 kg

DRUGS (4)
  1. FLUOROURACIL [Suspect]
     Active Substance: FLUOROURACIL
     Dates: start: 20250723
  2. CAMPTOSAR [Suspect]
     Active Substance: IRINOTECAN HYDROCHLORIDE
  3. LEUCOVORIN CALCIUM [Suspect]
     Active Substance: LEUCOVORIN CALCIUM
  4. ELOXATIN [Suspect]
     Active Substance: OXALIPLATIN

REACTIONS (6)
  - Colitis [None]
  - Platelet count decreased [None]
  - White blood cell count decreased [None]
  - Neutrophil count decreased [None]
  - Hyperkalaemia [None]
  - Hypophosphataemia [None]

NARRATIVE: CASE EVENT DATE: 20250729
